FAERS Safety Report 18941987 (Version 1)
Quarter: 2021Q1

REPORT INFORMATION
  Report Type: Spontaneous
  Country: IN (occurrence: IN)
  Receive Date: 20210225
  Receipt Date: 20210225
  Transmission Date: 20210420
  Serious: Yes (Death, Other)
  Sender: FDA-Public Use
  Company Number: IN-SA-2021SA023956

PATIENT
  Age: 55 Year
  Weight: 65 kg

DRUGS (4)
  1. CILACAR [Suspect]
     Active Substance: CILNIDIPINE
     Indication: DIABETES MELLITUS
     Dosage: 5 MG
  2. LANTUS [Suspect]
     Active Substance: INSULIN GLARGINE
     Indication: DIABETES MELLITUS
     Dosage: 10 IU
  3. DIAMICRON [Suspect]
     Active Substance: GLICLAZIDE
     Indication: DIABETES MELLITUS
     Dosage: 60 MG
  4. PIOZAR [Suspect]
     Active Substance: PIOGLITAZONE HYDROCHLORIDE
     Indication: DIABETES MELLITUS
     Dosage: 7.5 G

REACTIONS (5)
  - Decreased appetite [Fatal]
  - Abdominal pain [Fatal]
  - Weight decreased [Fatal]
  - Renal cell carcinoma [Fatal]
  - Neoplasm malignant [Fatal]
